FAERS Safety Report 5498861-0 (Version None)
Quarter: 2007Q4

REPORT INFORMATION
  Report Type: 
  Country: None (occurrence: None)
  Receive Date: 20071026
  Receipt Date: 20070727
  Transmission Date: 20080405
  Serious: No
  Sender: FDA-Public Use
  Company Number: A0666754A

PATIENT
  Age: 79 Year
  Sex: Female

DRUGS (6)
  1. ADVAIR DISKUS 100/50 [Suspect]
     Indication: ASTHMA
     Dosage: 1PUFF TWICE PER DAY
     Route: 055
     Dates: start: 20070101
  2. SPIRIVA [Concomitant]
  3. ALBUTEROL [Concomitant]
  4. LISINOPRIL [Concomitant]
  5. UNKNOWN MEDICATION [Concomitant]
  6. INSULIN [Concomitant]

REACTIONS (1)
  - BLOOD PRESSURE INCREASED [None]
